FAERS Safety Report 5450535-8 (Version None)
Quarter: 2007Q3

REPORT INFORMATION
  Report Type: 
  Country: None (occurrence: None)
  Receive Date: 20070806
  Receipt Date: 20060807
  Transmission Date: 20080115
  Serious: Yes (Other)
  Sender: FDA-Public Use
  Company Number: 29809

PATIENT
  Age: 45 Year
  Sex: Male
  Weight: 79.3795 kg

DRUGS (4)
  1. MIDAZOLAM HCL [Suspect]
     Indication: SEDATION
     Dosage: 7 MG IV
     Route: 042
     Dates: start: 20060715
  2. EFFEXOR [Concomitant]
  3. AMBIEN [Concomitant]
  4. CENTRUM [Concomitant]

REACTIONS (1)
  - DRUG INEFFECTIVE [None]
